FAERS Safety Report 13303586 (Version 5)
Quarter: 2018Q1

REPORT INFORMATION
  Report Type: Report from Study
  Country: US (occurrence: US)
  Receive Date: 20170307
  Receipt Date: 20180108
  Transmission Date: 20180508
  Serious: Yes (Hospitalization)
  Sender: FDA-Public Use
  Company Number: US-ACTELION-A-US2017-150309

PATIENT
  Age: 35 Year
  Sex: Female
  Weight: 71.2 kg

DRUGS (3)
  1. ADEMPAS [Concomitant]
     Active Substance: RIOCIGUAT
  2. OPSUMIT [Suspect]
     Active Substance: MACITENTAN
     Indication: PULMONARY ARTERIAL HYPERTENSION
     Dosage: 10 MG, QD
     Route: 048
  3. OPSUMIT [Suspect]
     Active Substance: MACITENTAN
     Dosage: UNK
     Route: 048

REACTIONS (10)
  - Sepsis [Unknown]
  - Hypotension [Unknown]
  - Bronchitis [Unknown]
  - Clostridium difficile infection [Unknown]
  - Abdominal infection [Unknown]
  - Sickle cell anaemia with crisis [Unknown]
  - Influenza [Unknown]
  - Oxygen saturation decreased [Unknown]
  - Dyspnoea [Unknown]
  - Pneumonia [Unknown]
